FAERS Safety Report 13988025 (Version 1)
Quarter: 2017Q3

REPORT INFORMATION
  Report Type: Spontaneous
  Country: US (occurrence: US)
  Receive Date: 20170919
  Receipt Date: 20170919
  Transmission Date: 20171128
  Serious: Yes (Other)
  Sender: FDA-Public Use
  Company Number: US-SAGENT PHARMACEUTICALS-2017SAG000269

PATIENT

DRUGS (1)
  1. NAFCILLIN SODIUM. [Suspect]
     Active Substance: NAFCILLIN SODIUM
     Indication: SEPTIC ARTHRITIS STAPHYLOCOCCAL

REACTIONS (2)
  - Hepatitis cholestatic [Recovered/Resolved]
  - Hypersensitivity [Recovered/Resolved]
